FAERS Safety Report 25756259 (Version 1)
Quarter: 2025Q3

REPORT INFORMATION
  Report Type: Spontaneous
  Country: KR (occurrence: KR)
  Receive Date: 20250903
  Receipt Date: 20250903
  Transmission Date: 20251021
  Serious: Yes (Other)
  Sender: ROCHE
  Company Number: KR-ROCHE-10000374569

PATIENT

DRUGS (2)
  1. BEVACIZUMAB [Suspect]
     Active Substance: BEVACIZUMAB
     Indication: Hepatocellular carcinoma
     Route: 065
  2. ATEZOLIZUMAB [Suspect]
     Active Substance: ATEZOLIZUMAB
     Indication: Hepatocellular carcinoma
     Route: 065

REACTIONS (7)
  - Hepatic function abnormal [Unknown]
  - Malignant neoplasm oligoprogression [Unknown]
  - Disease progression [Unknown]
  - Rash [Unknown]
  - Ill-defined disorder [Unknown]
  - Ascites [Unknown]
  - Anal haemorrhage [Unknown]
